FAERS Safety Report 5328336-0 (Version None)
Quarter: 2007Q2

REPORT INFORMATION
  Report Type: 
  Country: None (occurrence: None)
  Receive Date: 20070518
  Receipt Date: 20070508
  Transmission Date: 20071010
  Serious: Yes (Life-Threatening)
  Sender: FDA-Public Use
  Company Number: JP-JNJFOC-20070402714

PATIENT
  Sex: Female

DRUGS (9)
  1. FENTANYL CITRATE [Suspect]
     Indication: CANCER PAIN
     Route: 062
  2. MEXITIL [Concomitant]
     Indication: ARRHYTHMIA
     Route: 048
  3. INDERAL [Concomitant]
     Indication: ARRHYTHMIA
     Route: 048
  4. PENTASA [Concomitant]
     Indication: COLITIS ULCERATIVE
     Route: 048
  5. BAKTAR [Concomitant]
     Indication: INFECTION PROPHYLAXIS
     Route: 048
  6. DIFLUCAN [Concomitant]
     Indication: SYSTEMIC CANDIDA
     Route: 048
  7. ENTERONON-R [Concomitant]
     Indication: DIARRHOEA
     Route: 048
  8. PAXIL [Concomitant]
     Indication: DEPRESSION
     Route: 048
  9. PREDONINE [Concomitant]
     Indication: RASH
     Route: 065

REACTIONS (2)
  - HYPERCAPNIA [None]
  - RESPIRATORY ARREST [None]
